FAERS Safety Report 16950777 (Version 1)
Quarter: 2019Q4

REPORT INFORMATION
  Report Type: Spontaneous
  Country: BE (occurrence: BE)
  Receive Date: 20191023
  Receipt Date: 20191023
  Transmission Date: 20200122
  Serious: Yes (Hospitalization, Other)
  Sender: FDA-Public Use
  Company Number: NVSC2019BE007607

PATIENT
  Age: 67 Year
  Sex: Male

DRUGS (28)
  1. UNI DIAMICRON [Concomitant]
     Active Substance: GLICLAZIDE
     Indication: PRODUCT USED FOR UNKNOWN INDICATION
     Dosage: 2 DF, QD (MORNING)
     Route: 048
     Dates: start: 20170522
  2. SERETIDE [Concomitant]
     Active Substance: FLUTICASONE PROPIONATE\SALMETEROL XINAFOATE
     Indication: PRODUCT USED FOR UNKNOWN INDICATION
     Dosage: 2 DF, QD (MORNING, EVENING)
     Route: 055
     Dates: start: 20170522
  3. SPIRIVA [Concomitant]
     Active Substance: TIOTROPIUM BROMIDE MONOHYDRATE
     Indication: PRODUCT USED FOR UNKNOWN INDICATION
     Dosage: 1 DF, QD (MORNING)
     Route: 055
  4. RELVAR ELLIPTA [Concomitant]
     Active Substance: FLUTICASONE FUROATE\VILANTEROL TRIFENATATE
     Dosage: 1 DF, QD (MORNING)
     Route: 055
     Dates: start: 20190815
  5. TAMSULOSIN [Concomitant]
     Active Substance: TAMSULOSIN
     Indication: PRODUCT USED FOR UNKNOWN INDICATION
     Dosage: 1 DF, QD (EVENING)
     Route: 048
  6. PROGOR [Concomitant]
     Active Substance: DILTIAZEM HYDROCHLORIDE
     Indication: PRODUCT USED FOR UNKNOWN INDICATION
     Dosage: 1 DF, QD (MORNING)
     Route: 048
     Dates: start: 20170522
  7. DOMINAL (PROTHIPENDYL HYDROCHLORIDE) [Concomitant]
     Active Substance: PROTHIPENDYL HYDROCHLORIDE
     Indication: PRODUCT USED FOR UNKNOWN INDICATION
     Dosage: 0.5 DF, QD (NIGHT)
     Route: 048
     Dates: start: 20170522
  8. RELVAR ELLIPTA [Concomitant]
     Active Substance: FLUTICASONE FUROATE\VILANTEROL TRIFENATATE
     Indication: PRODUCT USED FOR UNKNOWN INDICATION
     Dosage: 1 DF, QD (MORNING)
     Route: 055
     Dates: start: 20190925
  9. SPIRIVA RESPIMAT [Concomitant]
     Active Substance: TIOTROPIUM BROMIDE
     Indication: PRODUCT USED FOR UNKNOWN INDICATION
     Dosage: 2 DF, QD 2 PIECES/DAY (MORNING)
     Route: 055
     Dates: start: 20190925
  10. RISPERDAL [Concomitant]
     Active Substance: RISPERIDONE
     Indication: PRODUCT USED FOR UNKNOWN INDICATION
     Dosage: 1 DF, QD
     Route: 048
     Dates: start: 20170522
  11. MEDROL [Concomitant]
     Active Substance: METHYLPREDNISOLONE
     Dosage: 0.5 DF, QD (MORNING)
     Route: 048
     Dates: start: 20191003
  12. DILTIAZEM HYDROCHLORIDE. [Concomitant]
     Active Substance: DILTIAZEM HYDROCHLORIDE
     Indication: PRODUCT USED FOR UNKNOWN INDICATION
     Dosage: 1 DF, QD (MORNING)
     Route: 048
  13. ASPIRIN. [Concomitant]
     Active Substance: ASPIRIN
     Indication: PRODUCT USED FOR UNKNOWN INDICATION
     Dosage: 1 DF, QD (MORNING)
     Route: 048
     Dates: start: 20170522
  14. CRESTOR [Concomitant]
     Active Substance: ROSUVASTATIN CALCIUM
     Indication: PRODUCT USED FOR UNKNOWN INDICATION
     Dosage: 1 DF, QOD (EVENING)
     Route: 048
     Dates: start: 20170522
  15. CLOPIDOGREL ZENTIVA [Concomitant]
     Active Substance: CLOPIDOGREL BISULFATE
     Indication: PRODUCT USED FOR UNKNOWN INDICATION
     Dosage: 75 MG, QD
     Route: 048
     Dates: start: 20190523
  16. FENOTEROL HYDROBROMIDE [Concomitant]
     Active Substance: FENOTEROL HYDROBROMIDE
     Indication: PRODUCT USED FOR UNKNOWN INDICATION
     Dosage: 2 DF EVERY 3 HOURS (MAX 6 INHALATION WITHIN 24 HOURS)
     Route: 055
     Dates: start: 20190925
  17. NEXIAM [Concomitant]
     Active Substance: ESOMEPRAZOLE
     Indication: PRODUCT USED FOR UNKNOWN INDICATION
     Dosage: 40 MG, QD (MORNING, DURING MEAL)
     Route: 048
     Dates: end: 20191002
  18. ERYTHROPOIETIN [Concomitant]
     Active Substance: ERYTHROPOIETIN
     Indication: PRODUCT USED FOR UNKNOWN INDICATION
     Dosage: UNK
     Route: 065
  19. ASPIRIN. [Concomitant]
     Active Substance: ASPIRIN
     Dosage: 1 DF, QD (MORNING)
     Route: 048
     Dates: start: 20190815
  20. METFORMAX [Concomitant]
     Active Substance: METFORMIN HYDROCHLORIDE
     Indication: PRODUCT USED FOR UNKNOWN INDICATION
     Dosage: 2 DF, QD (MORNING/EVENING)
     Route: 048
     Dates: start: 20170522
  21. CETISANDOZ [Concomitant]
     Indication: PRODUCT USED FOR UNKNOWN INDICATION
     Dosage: 1 DF, QD (EVENING)
     Route: 048
     Dates: start: 20170522
  22. ACLASTA [Suspect]
     Active Substance: ZOLEDRONIC ACID
     Indication: PRODUCT USED FOR UNKNOWN INDICATION
     Dosage: UNK
     Route: 065
     Dates: start: 20190814
  23. EZETROL [Concomitant]
     Active Substance: EZETIMIBE
     Indication: PRODUCT USED FOR UNKNOWN INDICATION
     Dosage: 1 DF, QD (EVENING)
     Route: 048
     Dates: start: 20170522
  24. NIQUITIN [Concomitant]
     Active Substance: NICOTINE
     Indication: PRODUCT USED FOR UNKNOWN INDICATION
     Dosage: 1 DF, QH
     Route: 062
     Dates: start: 20190925
  25. MEDROL [Concomitant]
     Active Substance: METHYLPREDNISOLONE
     Indication: PRODUCT USED FOR UNKNOWN INDICATION
     Dosage: 1 DF, QD DURING MEAL) - REGRESSIVE SCHEMA
     Route: 048
  26. COVERSYL [Concomitant]
     Active Substance: PERINDOPRIL
     Indication: PRODUCT USED FOR UNKNOWN INDICATION
     Dosage: 1 DF, QD (MORNING)
     Route: 048
     Dates: start: 20170522
  27. ZOLPIDEM [Concomitant]
     Active Substance: ZOLPIDEM TARTRATE
     Indication: PRODUCT USED FOR UNKNOWN INDICATION
     Dosage: 0.5 DF, QD (NIGHT)
     Route: 048
     Dates: start: 20170522
  28. STILNOCT [Concomitant]
     Active Substance: ZOLPIDEM TARTRATE
     Indication: PRODUCT USED FOR UNKNOWN INDICATION
     Dosage: 0.5 DF, QD (NIGHT)
     Route: 048

REACTIONS (28)
  - Renal ischaemia [Recovering/Resolving]
  - Livedo reticularis [Recovering/Resolving]
  - Hepatomegaly [Recovered/Resolved]
  - Peripheral swelling [Unknown]
  - Angiopathy [Unknown]
  - Cellulitis [Unknown]
  - Depressed mood [Unknown]
  - Liver function test abnormal [Recovering/Resolving]
  - Acute kidney injury [Recovering/Resolving]
  - Muscle atrophy [Unknown]
  - Anaemia [Recovering/Resolving]
  - Rhabdomyolysis [Unknown]
  - Hypoxia [Not Recovered/Not Resolved]
  - Arteriosclerosis [Recovering/Resolving]
  - Hepatocellular injury [Not Recovered/Not Resolved]
  - Blood creatinine increased [Unknown]
  - Kidney fibrosis [Recovering/Resolving]
  - Pyrexia [Recovering/Resolving]
  - Toxicity to various agents [Recovering/Resolving]
  - Hypocalcaemia [Unknown]
  - Diabetes mellitus [Unknown]
  - Fall [Recovering/Resolving]
  - Pruritus [Unknown]
  - Dyspnoea [Recovering/Resolving]
  - Pneumonia [Not Recovered/Not Resolved]
  - Pulmonary hypertension [Unknown]
  - Breath sounds abnormal [Recovering/Resolving]
  - Haematoma [Unknown]

NARRATIVE: CASE EVENT DATE: 20190815
